FAERS Safety Report 12992860 (Version 2)
Quarter: 2017Q1

REPORT INFORMATION
  Report Type: Report from Study
  Country: ES (occurrence: ES)
  Receive Date: 20161202
  Receipt Date: 20170113
  Transmission Date: 20170428
  Serious: Yes (Death, Hospitalization)
  Sender: FDA-Public Use
  Company Number: ES-ROCHE-1858547

PATIENT
  Age: 57 Year
  Sex: Male

DRUGS (8)
  1. CARBOPLATIN. [Suspect]
     Active Substance: CARBOPLATIN
     Indication: NON-SMALL CELL LUNG CANCER STAGE IV
     Dosage: INITIAL TARGET AREA UNDER THE CONCENTRATION-TIME CURVE (AUC) OF 6 MG/ML/MIN?THAT WAS ALSO THE MOST R
     Route: 042
     Dates: start: 20161111
  2. DEXKETOPROFENO [Concomitant]
     Indication: CHEST PAIN
     Route: 065
     Dates: start: 20161018
  3. AMOXICILLIN/CLAVULANIC ACID [Concomitant]
     Active Substance: AMOXICILLIN\CLAVULANIC ACID
     Indication: INFECTION PROPHYLAXIS
     Route: 065
     Dates: start: 20161021, end: 20161030
  4. OMEPRAZOL [Concomitant]
     Active Substance: OMEPRAZOLE
     Indication: PROPHYLAXIS
     Route: 065
     Dates: start: 20161031
  5. ACETILCISTEINA [Concomitant]
     Active Substance: ACETYLCYSTEINE
     Route: 065
     Dates: start: 20161024
  6. ZALDIAR [Concomitant]
     Active Substance: ACETAMINOPHEN\TRAMADOL HYDROCHLORIDE
     Indication: CHEST PAIN
     Route: 065
     Dates: start: 20161115
  7. ATEZOLIZUMAB [Suspect]
     Active Substance: ATEZOLIZUMAB
     Indication: NON-SMALL CELL LUNG CANCER STAGE IV
     Dosage: THAT WAS ALSO THE MOST RECENT DOSE OF ATEZOLIZUMAB
     Route: 042
     Dates: start: 20161111
  8. NAB-PACLITAXEL [Suspect]
     Active Substance: PACLITAXEL
     Indication: NON-SMALL CELL LUNG CANCER STAGE IV
     Dosage: DAY 1, DAY 8, AND DAY15 OF EACH 21-DAY CYCLE (PER PROTOCOL)?MOST RECENT DOSE 160 MG OF NAB-PACLITAXE
     Route: 042
     Dates: start: 20161111

REACTIONS (1)
  - Pneumonia [Fatal]

NARRATIVE: CASE EVENT DATE: 20161119
